FAERS Safety Report 13828200 (Version 1)
Quarter: 2017Q3

REPORT INFORMATION
  Report Type: Spontaneous
  Country: FR (occurrence: FR)
  Receive Date: 20170803
  Receipt Date: 20170803
  Transmission Date: 20171127
  Serious: Yes (Hospitalization, Other)
  Sender: FDA-Public Use
  Company Number: FR-009507513-1708FRA001317

PATIENT
  Age: 35 Year
  Sex: Female

DRUGS (1)
  1. NUVARING [Suspect]
     Active Substance: ETHINYL ESTRADIOL\ETONOGESTREL
     Indication: CONTRACEPTION
     Dosage: 1 RING/WEEK, 21 DAYS/28
     Route: 067
     Dates: start: 201701

REACTIONS (2)
  - Pregnancy [Recovered/Resolved with Sequelae]
  - Abortion induced [Recovered/Resolved]

NARRATIVE: CASE EVENT DATE: 20170514
